FAERS Safety Report 24444686 (Version 1)
Quarter: 2024Q4

REPORT INFORMATION
  Report Type: Spontaneous
  Country: GR (occurrence: GR)
  Receive Date: 20241016
  Receipt Date: 20241016
  Transmission Date: 20250114
  Serious: Yes (Hospitalization)
  Sender: MYLAN
  Company Number: GR-MYLANLABS-2024M1093273

PATIENT
  Age: 17 Year
  Sex: Male

DRUGS (9)
  1. GABAPENTIN [Suspect]
     Active Substance: GABAPENTIN
     Indication: Pain prophylaxis
     Dosage: 300 MILLIGRAM, QD
     Route: 065
  2. GABAPENTIN [Suspect]
     Active Substance: GABAPENTIN
     Indication: Analgesic therapy
     Dosage: 300 MILLIGRAM, BID
     Route: 065
  3. GABAPENTIN [Suspect]
     Active Substance: GABAPENTIN
     Dosage: 300 MILLIGRAM, TID (THREE TIMES A DAY)
     Route: 065
  4. GABAPENTIN [Suspect]
     Active Substance: GABAPENTIN
     Dosage: 300 MILLIGRAM, BID
     Route: 065
  5. GABAPENTIN [Suspect]
     Active Substance: GABAPENTIN
     Dosage: UNK, DOSE WAS REDUCED AND THE THERAPY WAS DISCONTINUED THEREAFTER
     Route: 065
  6. VANCOMYCIN [Suspect]
     Active Substance: VANCOMYCIN
     Indication: Antibiotic prophylaxis
     Dosage: 500 MILLIGRAM, QID
     Route: 042
  7. VANCOMYCIN [Suspect]
     Active Substance: VANCOMYCIN
     Dosage: 550 MILLIGRAM, QID
     Route: 042
  8. CEFEPIME [Suspect]
     Active Substance: CEFEPIME HYDROCHLORIDE
     Indication: Antibiotic prophylaxis
     Dosage: 2 GRAM, TID (THREE TIMES DAILY)
     Route: 065
  9. RIFAMPIN [Suspect]
     Active Substance: RIFAMPIN
     Indication: Antibiotic prophylaxis
     Dosage: 600 MILLIGRAM, QD
     Route: 065

REACTIONS (2)
  - Adrenal insufficiency [Recovered/Resolved]
  - Drug ineffective [Unknown]
